FAERS Safety Report 9777945 (Version 2)
Quarter: 2014Q1

REPORT INFORMATION
  Report Type: Spontaneous
  Country: IT (occurrence: IT)
  Receive Date: 20131223
  Receipt Date: 20140226
  Transmission Date: 20141002
  Serious: Yes (Hospitalization)
  Sender: FDA-Public Use
  Company Number: IT-BRISTOL-MYERS SQUIBB COMPANY-19927672

PATIENT
  Age: 63 Month
  Sex: Male

DRUGS (2)
  1. METFORMIN HCL [Suspect]
     Dates: start: 20120917, end: 20130916
  2. AMARYL [Suspect]
     Dosage: 2MG TABS
     Dates: start: 20120917, end: 20130916

REACTIONS (1)
  - Hypoglycaemic coma [Recovering/Resolving]
